FAERS Safety Report 12591374 (Version 2)
Quarter: 2016Q3

REPORT INFORMATION
  Report Type: Spontaneous
  Country: US (occurrence: US)
  Receive Date: 20160726
  Receipt Date: 20160726
  Transmission Date: 20161109
  Serious: No
  Sender: FDA-Public Use
  Company Number: US-UNITED THERAPEUTICS-UNT-2015-016695

PATIENT
  Age: 60 Year
  Sex: Male
  Weight: 81 kg

DRUGS (2)
  1. REMODULIN [Suspect]
     Active Substance: TREPROSTINIL
     Indication: PULMONARY ARTERIAL HYPERTENSION
     Dosage: 0.075 ?G/KG, CONTINUING
     Route: 041
     Dates: start: 20151230
  2. COUMADIN [Concomitant]
     Active Substance: WARFARIN SODIUM
     Indication: PRODUCT USED FOR UNKNOWN INDICATION

REACTIONS (7)
  - Pain [Unknown]
  - Diarrhoea [Unknown]
  - Overdose [Unknown]
  - Vomiting [Recovered/Resolved]
  - Headache [Unknown]
  - Nausea [Recovered/Resolved]
  - Influenza like illness [Unknown]

NARRATIVE: CASE EVENT DATE: 201512
